FAERS Safety Report 9648503 (Version 2)
Quarter: 2013Q4

REPORT INFORMATION
  Report Type: Spontaneous
  Country: AU (occurrence: AU)
  Receive Date: 20131028
  Receipt Date: 20131028
  Transmission Date: 20140711
  Serious: Yes (Disabling)
  Sender: FDA-Public Use
  Company Number: AU-SA-2013SA099157

PATIENT
  Age: 77 Year
  Sex: Male

DRUGS (5)
  1. KARVEZIDE [Suspect]
     Indication: HYPERTENSION
     Dosage: DAILY DOSE: 300/25
     Route: 065
     Dates: start: 20101110, end: 20130924
  2. SOTALOL [Interacting]
     Indication: HYPERTENSION
     Dosage: DAILY DOSE: 80
     Route: 065
     Dates: start: 20101110
  3. COVERSYL [Concomitant]
     Indication: HYPERTENSION
     Dosage: DAILY DOSE: 5
     Route: 048
     Dates: start: 20101110
  4. FISH OIL [Concomitant]
  5. MULTIVITAMINS [Concomitant]

REACTIONS (3)
  - Gynaecomastia [Recovering/Resolving]
  - Breast pain [Recovering/Resolving]
  - Drug interaction [Unknown]
